FAERS Safety Report 9184979 (Version 1)
Quarter: 2013Q1

REPORT INFORMATION
  Report Type: Spontaneous
  Country: MY (occurrence: MY)
  Receive Date: 20130325
  Receipt Date: 20130325
  Transmission Date: 20140127
  Serious: Yes (Hospitalization)
  Sender: FDA-Public Use
  Company Number: MY-PERRIGO-13MY002902

PATIENT
  Age: 8 Month
  Sex: Female

DRUGS (1)
  1. ACETAMINOPHEN [Suspect]
     Indication: PYREXIA
     Dosage: 105 MG, QID
     Route: 048

REACTIONS (24)
  - Acute hepatic failure [Recovered/Resolved]
  - Hepatic encephalopathy [Recovered/Resolved]
  - Coagulopathy [Recovered/Resolved]
  - Gastrointestinal haemorrhage [Recovered/Resolved]
  - Hepatomegaly [Recovered/Resolved]
  - Convulsion [Recovered/Resolved]
  - Toxicity to various agents [Recovered/Resolved]
  - Fluid overload [Recovered/Resolved]
  - Somnolence [Recovered/Resolved]
  - Petechiae [Recovered/Resolved]
  - Ascites [Recovered/Resolved]
  - Crepitations [Recovered/Resolved]
  - Pallor [Recovered/Resolved]
  - Hepatitis [Recovered/Resolved]
  - Haematocrit decreased [Recovered/Resolved]
  - Haematemesis [Recovered/Resolved]
  - Jaundice [Recovered/Resolved]
  - Liver function test abnormal [Recovered/Resolved]
  - International normalised ratio increased [Recovered/Resolved]
  - Prothrombin time prolonged [Recovered/Resolved]
  - Melaena [Recovered/Resolved]
  - Hyperreflexia [Recovered/Resolved]
  - Hypertonia [Recovered/Resolved]
  - Oedema [Recovered/Resolved]
